FAERS Safety Report 7294074-0 (Version None)
Quarter: 2011Q1

REPORT INFORMATION
  Report Type: 
  Country: None (occurrence: None)
  Receive Date: 20110203
  Receipt Date: 20110121
  Transmission Date: 20110831
  Serious: Yes (Hospitalization)
  Sender: FDA-Public Use
  Company Number: DSJ-2011-01262

PATIENT
  Age: 8 Decade
  Sex: Female

DRUGS (2)
  1. OLMESARTAN MEDOXOMIL [Suspect]
     Indication: HYPERTENSION
     Dosage: 20 MG, PER ORAL
     Route: 048
     Dates: start: 20110112, end: 20110117
  2. NEXAVAR [Concomitant]

REACTIONS (2)
  - DRUG ERUPTION [None]
  - SKIN TOXICITY [None]
